FAERS Safety Report 18835555 (Version 8)
Quarter: 2025Q1

REPORT INFORMATION
  Report Type: Report from Study
  Country: CA (occurrence: None)
  Receive Date: 20210203
  Receipt Date: 20250321
  Transmission Date: 20250409
  Serious: Yes (Hospitalization, Other)
  Sender: ORION
  Company Number: CA-PFIZER INC-2021083735

PATIENT
  Age: 50 Year
  Sex: Female
  Weight: 88 kg

DRUGS (22)
  1. METHOTREXATE [Suspect]
     Active Substance: METHOTREXATE
     Indication: Psoriasis
  2. METHOTREXATE [Suspect]
     Active Substance: METHOTREXATE
     Indication: Arthralgia
  3. METHOTREXATE [Suspect]
     Active Substance: METHOTREXATE
  4. METHOTREXATE [Suspect]
     Active Substance: METHOTREXATE
  5. SILIQ [Suspect]
     Active Substance: BRODALUMAB
     Indication: Psoriasis
  6. SILIQ [Suspect]
     Active Substance: BRODALUMAB
  7. SILIQ [Suspect]
     Active Substance: BRODALUMAB
  8. SILIQ [Suspect]
     Active Substance: BRODALUMAB
  9. SILIQ [Suspect]
     Active Substance: BRODALUMAB
  10. SILIQ [Suspect]
     Active Substance: BRODALUMAB
  11. SILIQ [Suspect]
     Active Substance: BRODALUMAB
  12. FOLIC ACID [Concomitant]
     Active Substance: FOLIC ACID
     Indication: Arthralgia
  13. CELECOXIB [Concomitant]
     Active Substance: CELECOXIB
  14. CELEBREX [Concomitant]
     Active Substance: CELECOXIB
  15. CELEBREX [Concomitant]
     Active Substance: CELECOXIB
  16. ROSUVASTATIN [Concomitant]
     Active Substance: ROSUVASTATIN
     Indication: Blood cholesterol abnormal
  17. ROSUVASTATIN [Concomitant]
     Active Substance: ROSUVASTATIN
  18. ASPIRIN [Concomitant]
     Active Substance: ASPIRIN
  19. BISOPROLOL [Concomitant]
     Active Substance: BISOPROLOL
  20. CLOPIDOGREL [Concomitant]
     Active Substance: CLOPIDOGREL BISULFATE
  21. MEDROXYPROGESTERONE [Concomitant]
     Active Substance: MEDROXYPROGESTERONE
  22. REPATHA [Concomitant]
     Active Substance: EVOLOCUMAB

REACTIONS (18)
  - Drug ineffective [Not Recovered/Not Resolved]
  - Drug ineffective for unapproved indication [Not Recovered/Not Resolved]
  - Product use in unapproved indication [Unknown]
  - Liver function test increased [Not Recovered/Not Resolved]
  - Blood pressure increased [Not Recovered/Not Resolved]
  - Feeling abnormal [Not Recovered/Not Resolved]
  - Gait disturbance [Not Recovered/Not Resolved]
  - Polyp [Not Recovered/Not Resolved]
  - Pruritus [Not Recovered/Not Resolved]
  - Stress [Not Recovered/Not Resolved]
  - Body temperature decreased [Not Recovered/Not Resolved]
  - Hepatic lesion [Not Recovered/Not Resolved]
  - Onychalgia [Not Recovered/Not Resolved]
  - Skin laceration [Not Recovered/Not Resolved]
  - Fall [Not Recovered/Not Resolved]
  - Meniscus injury [Not Recovered/Not Resolved]
  - Coronary artery occlusion [Not Recovered/Not Resolved]
  - Anxiety [Not Recovered/Not Resolved]
